FAERS Safety Report 6622957-0 (Version None)
Quarter: 2010Q1

REPORT INFORMATION
  Report Type: 
  Country: None (occurrence: None)
  Receive Date: 20100310
  Receipt Date: 20100106
  Transmission Date: 20100710
  Serious: Yes (Hospitalization)
  Sender: FDA-Public Use
  Company Number: US-BIOGENIDEC-2010BI000401

PATIENT
  Age: 57 Year
  Sex: Female
  Weight: 50 kg

DRUGS (2)
  1. AVONEX [Suspect]
     Indication: MULTIPLE SCLEROSIS
     Route: 030
     Dates: start: 20091201
  2. XANAX [Concomitant]
     Indication: PREMEDICATION
     Dates: start: 20091208

REACTIONS (5)
  - CHEST DISCOMFORT [None]
  - DYSPNOEA [None]
  - INFLUENZA LIKE ILLNESS [None]
  - NASAL CONGESTION [None]
  - SINUS CONGESTION [None]
